FAERS Safety Report 25012863 (Version 1)
Quarter: 2025Q1

REPORT INFORMATION
  Report Type: Spontaneous
  Country: US (occurrence: US)
  Receive Date: 20250226
  Receipt Date: 20250226
  Transmission Date: 20250409
  Serious: Yes (Hospitalization, Other)
  Sender: AMGEN
  Company Number: US-AMGEN-USASP2025033060

PATIENT

DRUGS (3)
  1. CARFILZOMIB [Suspect]
     Active Substance: CARFILZOMIB
     Indication: Plasma cell myeloma
     Route: 065
  2. VENETOCLAX [Suspect]
     Active Substance: VENETOCLAX
     Indication: Plasma cell myeloma
     Dosage: UNK UNK, QD, MOST TOLERATED A FULL DOSE OF 800MG QD (68.3%), 29.1% 400MG, 2.5% 600 MG DAILY
     Route: 065
  3. DEXAMETHASONE [Suspect]
     Active Substance: DEXAMETHASONE
     Indication: Plasma cell myeloma
     Route: 065

REACTIONS (38)
  - JC virus infection [Unknown]
  - Sepsis [Unknown]
  - Gastrointestinal infection [Unknown]
  - Febrile neutropenia [Unknown]
  - Escherichia bacteraemia [Unknown]
  - Pneumonia [Unknown]
  - Pneumonia streptococcal [Unknown]
  - COVID-19 pneumonia [Unknown]
  - Pneumonia viral [Unknown]
  - Pneumonia parainfluenzae viral [Unknown]
  - Pneumonia influenzal [Unknown]
  - Neuropathy peripheral [Unknown]
  - Urinary tract infection [Unknown]
  - Muscle spasms [Unknown]
  - Sexually transmitted disease [Unknown]
  - Fatigue [Unknown]
  - Lethargy [Unknown]
  - Asthenia [Unknown]
  - Haemorrhage [Unknown]
  - Headache [Unknown]
  - Dizziness [Unknown]
  - Visual impairment [Unknown]
  - Depression [Unknown]
  - Insomnia [Unknown]
  - Respiratory tract infection [Unknown]
  - Nausea [Unknown]
  - Vomiting [Unknown]
  - Constipation [Unknown]
  - Diarrhoea [Unknown]
  - Abdominal pain [Unknown]
  - Decreased appetite [Unknown]
  - Cough [Unknown]
  - Dyspnoea [Unknown]
  - Chest pain [Unknown]
  - Palpitations [Unknown]
  - Oedema peripheral [Unknown]
  - Muscle spasms [Unknown]
  - Off label use [Unknown]
